FAERS Safety Report 23611555 (Version 1)
Quarter: 2024Q1

REPORT INFORMATION
  Report Type: Spontaneous
  Country: US (occurrence: None)
  Receive Date: 20240308
  Receipt Date: 20240308
  Transmission Date: 20240410
  Serious: Yes (Other)
  Sender: FDA-Public Use
  Company Number: 2024A055357

PATIENT
  Sex: Male
  Weight: 70 kg

DRUGS (14)
  1. FASENRA [Suspect]
     Active Substance: BENRALIZUMAB
     Indication: Product used for unknown indication
     Route: 058
  2. DUPIXENT [Suspect]
     Active Substance: DUPILUMAB
     Indication: Asthma
     Dosage: 300 MG/2ML
     Route: 058
  3. OMALIZUMAB [Concomitant]
     Active Substance: OMALIZUMAB
  4. ACETAMINOPHEN [Concomitant]
     Active Substance: ACETAMINOPHEN
  5. MONTELUKAST SODIUM [Concomitant]
     Active Substance: MONTELUKAST SODIUM
  6. MOMELASONE FUROATE [Concomitant]
  7. AMLODIPINE BESYLATE [Concomitant]
     Active Substance: AMLODIPINE BESYLATE
  8. TELMISARTAN [Concomitant]
     Active Substance: TELMISARTAN
  9. CHOLECALCIFEROL [Concomitant]
     Active Substance: CHOLECALCIFEROL
  10. FORMOTEROL FUMARATE [Concomitant]
     Active Substance: FORMOTEROL FUMARATE
  11. METFORMIN HYDROCHLORIDFE [Concomitant]
  12. SPIRIVA [Concomitant]
     Active Substance: TIOTROPIUM BROMIDE MONOHYDRATE
  13. ALBUTEROL [Concomitant]
     Active Substance: ALBUTEROL
  14. EPIPEN [Concomitant]
     Active Substance: EPINEPHRINE

REACTIONS (7)
  - Hypersensitivity pneumonitis [Unknown]
  - Type III immune complex mediated reaction [Unknown]
  - Immune-mediated dermatitis [Unknown]
  - Asthma-chronic obstructive pulmonary disease overlap syndrome [Unknown]
  - Restrictive pulmonary disease [Unknown]
  - Bronchitis [Unknown]
  - Psoriasis [Unknown]
